FAERS Safety Report 6028061-7 (Version None)
Quarter: 2008Q4

REPORT INFORMATION
  Report Type: 
  Country: None (occurrence: None)
  Receive Date: 20081230
  Receipt Date: 20081217
  Transmission Date: 20090506
  Serious: Yes (Hospitalization)
  Sender: FDA-Public Use
  Company Number: POMP-1000425

PATIENT
  Age: 2 Year
  Sex: Male
  Weight: 13 kg

DRUGS (25)
  1. MYOZYME [Suspect]
     Indication: GLYCOGEN STORAGE DISEASE TYPE II
     Dosage: 40 MG/KG, Q2W, INTRAVENOUS; 30 MG/KG, Q2W, INTRAVENOUS; 20 MG/KG, Q2W, INTRAVENOUS
     Route: 042
     Dates: start: 20060911, end: 20070401
  2. MYOZYME [Suspect]
     Indication: GLYCOGEN STORAGE DISEASE TYPE II
     Dosage: 40 MG/KG, Q2W, INTRAVENOUS; 30 MG/KG, Q2W, INTRAVENOUS; 20 MG/KG, Q2W, INTRAVENOUS
     Route: 042
     Dates: start: 20070509, end: 20070701
  3. MYOZYME [Suspect]
     Indication: GLYCOGEN STORAGE DISEASE TYPE II
     Dosage: 40 MG/KG, Q2W, INTRAVENOUS; 30 MG/KG, Q2W, INTRAVENOUS; 20 MG/KG, Q2W, INTRAVENOUS
     Route: 042
     Dates: start: 20070801
  4. BENADRYL [Concomitant]
  5. ACETAMINOPHEN [Concomitant]
  6. HYDROCORTISONE (HYDROCORTISONE) [Concomitant]
  7. QVAR [Concomitant]
  8. CALCIUM GLUCONATE [Concomitant]
  9. EPOGEN [Concomitant]
  10. ERGOCALCIFEROL [Concomitant]
  11. FLECAINIDE ACETATE [Concomitant]
  12. LACTOBACILLUS (LACTOBACILLUS ACIDOPHILUS) [Concomitant]
  13. PREVACID [Concomitant]
  14. XOPENEX [Concomitant]
  15. METHOTREXATE [Concomitant]
  16. NYSTATIN [Concomitant]
  17. SODIUM CHLORIDE 0.9% [Concomitant]
  18. ALDACTONE (POTASSIUM CANRENOATE) [Concomitant]
  19. BACTRIM [Concomitant]
  20. VENOFER [Concomitant]
  21. ZOSYN [Concomitant]
  22. RITUXIMAB (RITUXIMAB) [Concomitant]
  23. BECLOMETHASONE DIPROPIONATE [Concomitant]
  24. VITAMIN D [Concomitant]
  25. SPIRONOLACTONE [Concomitant]

REACTIONS (10)
  - CATHETER RELATED INFECTION [None]
  - GASTROENTERITIS VIRAL [None]
  - MORAXELLA INFECTION [None]
  - NEUTROPHIL COUNT DECREASED [None]
  - PSEUDOMONAS INFECTION [None]
  - RESPIRATORY DISTRESS [None]
  - RETCHING [None]
  - SALIVARY HYPERSECRETION [None]
  - TRACHEOBRONCHITIS [None]
  - WHITE BLOOD CELL COUNT DECREASED [None]
